FAERS Safety Report 17299442 (Version 1)
Quarter: 2020Q1

REPORT INFORMATION
  Report Type: Spontaneous
  Country: US (occurrence: US)
  Receive Date: 20200121
  Receipt Date: 20200121
  Transmission Date: 20200409
  Serious: Yes (Hospitalization)
  Sender: FDA-Public Use
  Company Number: None

PATIENT
  Age: 41 Year
  Sex: Female
  Weight: 51.75 kg

DRUGS (1)
  1. OCRELIZUMAB. [Suspect]
     Active Substance: OCRELIZUMAB
     Indication: MULTIPLE SCLEROSIS

REACTIONS (5)
  - Pyrexia [None]
  - Agranulocytosis [None]
  - Asthenia [None]
  - White blood cell count decreased [None]
  - Neutrophil count decreased [None]

NARRATIVE: CASE EVENT DATE: 20191227
